FAERS Safety Report 17728214 (Version 4)
Quarter: 2020Q2

REPORT INFORMATION
  Report Type: Report from Study
  Country: US (occurrence: US)
  Receive Date: 20200430
  Receipt Date: 20200525
  Transmission Date: 20200714
  Serious: Yes (Hospitalization, Other)
  Sender: FDA-Public Use
  Company Number: NVSC2020US107963

PATIENT
  Age: 36 Year
  Sex: Female
  Weight: 123.81 kg

DRUGS (2)
  1. TREPROSTINIL. [Suspect]
     Active Substance: TREPROSTINIL
     Indication: PULMONARY ARTERIAL HYPERTENSION
     Dosage: 78 UNK (NG/KG/MIN), FREQ: CONTINOUS
     Route: 042
     Dates: start: 20200407
  2. TADALAFIL. [Concomitant]
     Active Substance: TADALAFIL
     Indication: PRODUCT USED FOR UNKNOWN INDICATION
     Route: 065

REACTIONS (3)
  - Vascular device infection [Unknown]
  - Pyrexia [Unknown]
  - Thrombosis [Unknown]

NARRATIVE: CASE EVENT DATE: 20200417
